FAERS Safety Report 5239572-6 (Version None)
Quarter: 2007Q1

REPORT INFORMATION
  Report Type: 
  Country: None (occurrence: None)
  Receive Date: 20070216
  Receipt Date: 20070207
  Transmission Date: 20070707
  Serious: Yes (Other)
  Sender: FDA-Public Use
  Company Number: US-ROCHE-469673

PATIENT
  Age: 13 Year

DRUGS (2)
  1. ACCUTANE [Suspect]
     Indication: ACNE
     Route: 065
     Dates: start: 20060215, end: 20060815
  2. SYNTHROID [Concomitant]

REACTIONS (4)
  - ANTI-THYROID ANTIBODY [None]
  - ARTHRALGIA [None]
  - AUTOIMMUNE THYROIDITIS [None]
  - FATIGUE [None]
